FAERS Safety Report 5155639-5 (Version None)
Quarter: 2006Q4

REPORT INFORMATION
  Report Type: 
  Country: None (occurrence: None)
  Receive Date: 20061114
  Receipt Date: 20061030
  Transmission Date: 20070319
  Serious: Yes (Hospitalization)
  Sender: FDA-Public Use
  Company Number: 2006134049

PATIENT
  Age: 22 Year
  Sex: Female

DRUGS (2)
  1. SERTRALINE [Suspect]
     Dosage: 50 MG
  2. IRON (IRON) [Concomitant]

REACTIONS (4)
  - ASTHENIA [None]
  - OEDEMA [None]
  - PAIN [None]
  - RHABDOMYOLYSIS [None]
